FAERS Safety Report 25184449 (Version 1)
Quarter: 2025Q2

REPORT INFORMATION
  Report Type: Spontaneous
  Country: US (occurrence: US)
  Receive Date: 20250410
  Receipt Date: 20250410
  Transmission Date: 20250716
  Serious: Yes (Hospitalization)
  Sender: PFIZER
  Company Number: US-PFIZER INC-202500075341

PATIENT
  Age: 57 Year
  Sex: Female

DRUGS (1)
  1. LEVOXYL [Suspect]
     Active Substance: LEVOTHYROXINE SODIUM
     Dosage: TAKE ONE TABLET EVERYDAY
     Dates: start: 20250303, end: 20250403

REACTIONS (6)
  - Headache [Recovering/Resolving]
  - Chest pain [Recovering/Resolving]
  - Presyncope [Recovering/Resolving]
  - Muscular weakness [Recovering/Resolving]
  - Hypertension [Recovering/Resolving]
  - Abdominal pain [Recovering/Resolving]

NARRATIVE: CASE EVENT DATE: 20250330
